FAERS Safety Report 5003215-7 (Version None)
Quarter: 2006Q2

REPORT INFORMATION
  Report Type: 
  Country: None (occurrence: None)
  Receive Date: 20060512
  Receipt Date: 20060426
  Transmission Date: 20061013
  Serious: Yes (Hospitalization)
  Sender: FDA-Public Use
  Company Number: 2006058432

PATIENT
  Sex: Female
  Weight: 63.5036 kg

DRUGS (1)
  1. BEXTRA [Suspect]
     Indication: ARTHRITIS
     Dosage: 60 MG (20 MG, 3 IN 1 D)

REACTIONS (7)
  - BIPOLAR I DISORDER [None]
  - HAND FRACTURE [None]
  - HIP FRACTURE [None]
  - JOINT INJURY [None]
  - LIMB INJURY [None]
  - PELVIC FRACTURE [None]
  - TRANSIENT ISCHAEMIC ATTACK [None]
